FAERS Safety Report 6861090-X (Version None)
Quarter: 2010Q3

REPORT INFORMATION
  Report Type: 
  Country: None (occurrence: None)
  Receive Date: 20100720
  Receipt Date: 20100708
  Transmission Date: 20110219
  Serious: Yes (Other)
  Sender: FDA-Public Use
  Company Number: FR-ASTRAZENECA-2010SE32212

PATIENT
  Age: 64 Year
  Sex: Male
  Weight: 62 kg

DRUGS (2)
  1. CASODEX [Suspect]
     Indication: PROSTATE CANCER
     Route: 048
     Dates: start: 20080401, end: 20080401
  2. SUTENT [Interacting]
     Indication: RENAL CANCER METASTATIC
     Dates: start: 20080301

REACTIONS (4)
  - CYTOLYTIC HEPATITIS [None]
  - DRUG INTERACTION [None]
  - DYSPEPSIA [None]
  - HYPOTHYROIDISM [None]
